FAERS Safety Report 5073463-9 (Version None)
Quarter: 2006Q3

REPORT INFORMATION
  Report Type: 
  Country: None (occurrence: None)
  Receive Date: 20060803
  Receipt Date: 20051111
  Transmission Date: 20061208
  Serious: Yes (Other)
  Sender: FDA-Public Use
  Company Number: FDB-2005-015A

PATIENT
  Age: 54 Year
  Sex: Female
  Weight: 51.7101 kg

DRUGS (1)
  1. CIS SULFUR COLLOID TECHNETIUM 99M INJECTION [Suspect]
     Indication: SCAN SPLEEN
     Dosage: INJECTION
     Dates: start: 20051107

REACTIONS (10)
  - ANOSMIA [None]
  - DYSGEUSIA [None]
  - DYSPNOEA [None]
  - HEADACHE [None]
  - HYPERTENSION [None]
  - MALAISE [None]
  - MUSCULAR WEAKNESS [None]
  - PALPITATIONS [None]
  - SWOLLEN TONGUE [None]
  - VISUAL DISTURBANCE [None]
